FAERS Safety Report 19359768 (Version 1)
Quarter: 2021Q2

REPORT INFORMATION
  Report Type: Spontaneous
  Country: FR (occurrence: FR)
  Receive Date: 20210601
  Receipt Date: 20210601
  Transmission Date: 20210717
  Serious: Yes (Hospitalization)
  Sender: FDA-Public Use
  Company Number: FR-ROCHE-2836836

PATIENT
  Age: 27 Year
  Sex: Female
  Weight: 60 kg

DRUGS (5)
  1. LOXAPAC [Suspect]
     Active Substance: LOXAPINE
     Indication: INTENTIONAL OVERDOSE
     Route: 048
     Dates: start: 20210420, end: 20210420
  2. CYAMEMAZINE [Suspect]
     Active Substance: CYAMEMAZINE
     Indication: INTENTIONAL OVERDOSE
     Route: 048
     Dates: start: 20210420, end: 20210420
  3. NOCTAMIDE [Suspect]
     Active Substance: LORMETAZEPAM
     Indication: INTENTIONAL OVERDOSE
     Route: 048
     Dates: start: 20210420, end: 20210420
  4. DIAZEPAM. [Suspect]
     Active Substance: DIAZEPAM
     Indication: INTENTIONAL OVERDOSE
     Route: 048
     Dates: start: 20210420, end: 20210420
  5. VENLAFAXINE [Suspect]
     Active Substance: VENLAFAXINE HYDROCHLORIDE
     Indication: INTENTIONAL OVERDOSE
     Route: 048
     Dates: start: 20210420, end: 20210420

REACTIONS (2)
  - Poisoning deliberate [Recovering/Resolving]
  - Coma [Recovering/Resolving]

NARRATIVE: CASE EVENT DATE: 20210420
